FAERS Safety Report 12873895 (Version 2)
Quarter: 2016Q4

REPORT INFORMATION
  Report Type: Spontaneous
  Country: GB (occurrence: GB)
  Receive Date: 20161021
  Receipt Date: 20161030
  Transmission Date: 20170207
  Serious: Yes (Other)
  Sender: FDA-Public Use
  Company Number: GB-ASTRAZENECA-2016SF10031

PATIENT
  Age: 65 Year
  Sex: Female
  Weight: 52 kg

DRUGS (7)
  1. VAGIFEM [Concomitant]
     Active Substance: ESTRADIOL
     Dosage: 10.0UG UNKNOWN
  2. CLOTRIMAZOLE. [Concomitant]
     Active Substance: CLOTRIMAZOLE
  3. NAPROXEN. [Suspect]
     Active Substance: NAPROXEN
     Indication: ANALGESIC THERAPY
     Route: 048
     Dates: start: 20160921, end: 20160929
  4. OMEPRAZOLE. [Suspect]
     Active Substance: OMEPRAZOLE
     Indication: GASTRIC DISORDER
     Route: 048
     Dates: start: 20160921, end: 20160929
  5. OMEPRAZOLE. [Suspect]
     Active Substance: OMEPRAZOLE
     Indication: PROPHYLAXIS AGAINST GASTROINTESTINAL ULCER
     Route: 048
     Dates: start: 20160921, end: 20160929
  6. DERMOVATE [Concomitant]
     Active Substance: CLOBETASOL
  7. REFRESH CELLUVISC [Concomitant]
     Active Substance: CARBOXYMETHYLCELLULOSE SODIUM

REACTIONS (4)
  - Vision blurred [Recovered/Resolved]
  - Eye pain [Recovered/Resolved]
  - Eye discharge [Recovered/Resolved]
  - Ocular hyperaemia [Recovered/Resolved]

NARRATIVE: CASE EVENT DATE: 20160924
